FAERS Safety Report 10631760 (Version 3)
Quarter: 2015Q1

REPORT INFORMATION
  Report Type: Report from Study
  Country: US (occurrence: US)
  Receive Date: 20141205
  Receipt Date: 20150227
  Transmission Date: 20150720
  Serious: Yes (Other)
  Sender: FDA-Public Use
  Company Number: PHEH2014US024011

PATIENT
  Sex: Female

DRUGS (1)
  1. GILENYA [Suspect]
     Active Substance: FINGOLIMOD HYDROCHLORIDE
     Indication: RELAPSING-REMITTING MULTIPLE SCLEROSIS
     Dosage: 0.5 MG, QD
     Route: 048
     Dates: start: 20140802

REACTIONS (3)
  - Visual field defect [Not Recovered/Not Resolved]
  - Optic neuritis [Recovered/Resolved]
  - Visual impairment [Not Recovered/Not Resolved]
